FAERS Safety Report 4300685-4 (Version None)
Quarter: 2004Q1

REPORT INFORMATION
  Report Type: 
  Country: None (occurrence: None)
  Receive Date: 20040218
  Receipt Date: 20040130
  Transmission Date: 20041129
  Serious: Yes (Death, Other)
  Sender: FDA-Public Use
  Company Number: JP_030601091

PATIENT
  Age: 66 Year
  Sex: Female
  Weight: 45 kg

DRUGS (5)
  1. GEMZAR [Suspect]
     Indication: NON-SMALL CELL LUNG CANCER
     Dosage: 1000 MG/OTHER
     Dates: start: 20020819, end: 20020819
  2. TAXOL ^BRISTOL-MYERS SQUIBB^ (PACLITAXEL) [Concomitant]
  3. PARAPLATIN [Concomitant]
  4. CHLOR-TRIMETON [Concomitant]
  5. DECADRON #1 (DEXAMETHASONE SODIUM PHOSPHATE) [Concomitant]

REACTIONS (2)
  - MALIGNANT NEOPLASM PROGRESSION [None]
  - METASTASES TO BONE [None]
